FAERS Safety Report 24577818 (Version 2)
Quarter: 2024Q4

REPORT INFORMATION
  Report Type: Spontaneous
  Country: CA (occurrence: CA)
  Receive Date: 20241104
  Receipt Date: 20241204
  Transmission Date: 20250114
  Serious: Yes (Other)
  Sender: PFIZER
  Company Number: CA-PFIZER INC-202400226773

PATIENT
  Age: 48 Year
  Sex: Female

DRUGS (9)
  1. VELSIPITY [Suspect]
     Active Substance: ETRASIMOD ARGININE
     Indication: Colitis ulcerative
     Dosage: 2 MG, 1X/DAY
     Route: 048
     Dates: start: 20240612
  2. VELSIPITY [Suspect]
     Active Substance: ETRASIMOD ARGININE
     Dosage: 2 MG, 1X/DAY
     Route: 048
     Dates: start: 2024, end: 2024
  3. BUDESONIDE [Concomitant]
     Active Substance: BUDESONIDE
     Dosage: 9 MG, DAILY X 60 DAYS
     Route: 065
  4. BUDESONIDE [Concomitant]
     Active Substance: BUDESONIDE
     Dosage: 9MG FOR 8 WEEKS
     Route: 065
  5. BUDESONIDE [Concomitant]
     Active Substance: BUDESONIDE
     Dosage: 1000 UG, DAILY
  6. MESALAMINE [Concomitant]
     Active Substance: MESALAMINE
     Dosage: 4.8 G, 1X/DAY
     Route: 065
     Dates: start: 2016
  7. MONOFERRIC [Concomitant]
     Active Substance: FERRIC DERISOMALTOSE
     Dosage: 000 MG IV EVERY 4 WEEKS X 2
     Route: 042
  8. ERGOCALCIFEROL [Concomitant]
     Active Substance: ERGOCALCIFEROL
     Dosage: 1 DF, 1X/DAY (1000 UNITS)
     Route: 065
  9. ERGOCALCIFEROL [Concomitant]
     Active Substance: ERGOCALCIFEROL
     Dosage: UNK, DAILY (2500 UNITS)

REACTIONS (7)
  - Condition aggravated [Not Recovered/Not Resolved]
  - Ileal ulcer [Not Recovered/Not Resolved]
  - Rectal haemorrhage [Not Recovered/Not Resolved]
  - Therapeutic product effect incomplete [Recovering/Resolving]
  - Nausea [Recovering/Resolving]
  - Weight decreased [Recovering/Resolving]
  - Iron deficiency anaemia [Unknown]

NARRATIVE: CASE EVENT DATE: 20240101
